FAERS Safety Report 9565487 (Version 5)
Quarter: 2014Q1

REPORT INFORMATION
  Report Type: Report from Study
  Country: US (occurrence: US)
  Receive Date: 20130930
  Receipt Date: 20140324
  Transmission Date: 20141002
  Serious: Yes (Hospitalization)
  Sender: FDA-Public Use
  Company Number: US-ACTELION-A-NJ2013-88838

PATIENT
  Age: 46 Year
  Sex: Female

DRUGS (2)
  1. TRACLEER [Suspect]
     Indication: PULMONARY ARTERIAL HYPERTENSION
     Dosage: UNK
     Route: 048
  2. TYVASO [Concomitant]

REACTIONS (17)
  - Long QT syndrome [Unknown]
  - Pneumonia [Unknown]
  - Cough [Unknown]
  - Dyspnoea [Unknown]
  - Fatigue [Unknown]
  - Syncope [Unknown]
  - Nasopharyngitis [Unknown]
  - Renal impairment [Unknown]
  - Nocturnal dyspnoea [Unknown]
  - Drug dose omission [Unknown]
  - Dizziness [Unknown]
  - Oedema [Unknown]
  - Chest discomfort [Unknown]
  - Weight increased [Unknown]
  - Heart rate irregular [Unknown]
  - Echocardiogram abnormal [Unknown]
  - Oedema peripheral [Unknown]
